FAERS Safety Report 8578502-6 (Version None)
Quarter: 2012Q3

REPORT INFORMATION
  Report Type: 
  Country: None (occurrence: None)
  Receive Date: 20120808
  Receipt Date: 20120731
  Transmission Date: 20120928
  Serious: Yes (Hospitalization, Other)
  Sender: FDA-Public Use
  Company Number: US-US-EMD SERONO, INC.-7150303

PATIENT
  Sex: Male
  Weight: 142 kg

DRUGS (1)
  1. REBIF [Suspect]
     Indication: MULTIPLE SCLEROSIS
     Route: 058
     Dates: start: 20120501

REACTIONS (9)
  - GAIT DISTURBANCE [None]
  - EYE MOVEMENT DISORDER [None]
  - DYSARTHRIA [None]
  - OBESITY [None]
  - DYSPHAGIA [None]
  - CHILLS [None]
  - ILEOSTOMY [None]
  - PAIN [None]
  - PYREXIA [None]
